FAERS Safety Report 12531030 (Version 2)
Quarter: 2016Q3

REPORT INFORMATION
  Report Type: Report from Study
  Country: US (occurrence: US)
  Receive Date: 20160706
  Receipt Date: 20160718
  Transmission Date: 20161109
  Serious: Yes (Hospitalization, Other)
  Sender: FDA-Public Use
  Company Number: US-PFIZER INC-2016327201

PATIENT
  Sex: Female
  Weight: 2.97 kg

DRUGS (7)
  1. BLINDED NICOTINE [Suspect]
     Active Substance: NICOTINE
     Indication: SMOKING CESSATION THERAPY
     Dosage: UNK, DAILY
     Route: 064
     Dates: start: 20160128, end: 20160212
  2. BUPRENORPHINE. [Suspect]
     Active Substance: BUPRENORPHINE
     Dosage: 12 MG, DAILY
     Route: 064
     Dates: start: 20160620
  3. BLINDED NICOTINE [Suspect]
     Active Substance: NICOTINE
     Indication: SMOKING CESSATION THERAPY
     Dosage: UNK, DAILY
     Route: 064
     Dates: start: 20160128, end: 20160212
  4. HEROIN [Suspect]
     Active Substance: DIACETYLMORPHINE
     Dosage: 2 BAGS, 1X
     Route: 064
     Dates: start: 20160616, end: 20160616
  5. BLINDED PLACEBO [Suspect]
     Active Substance: INVESTIGATIONAL PRODUCT
     Indication: SMOKING CESSATION THERAPY
     Dosage: UNK, DAILY
     Route: 064
     Dates: start: 20160128, end: 20160212
  6. BLINDED PLACEBO [Suspect]
     Active Substance: INVESTIGATIONAL PRODUCT
     Indication: SMOKING CESSATION THERAPY
     Dosage: UNK, DAILY
     Route: 064
     Dates: start: 20160128, end: 20160212
  7. BUPRENORPHINE. [Suspect]
     Active Substance: BUPRENORPHINE
     Indication: DRUG DEPENDENCE
     Dosage: 12 MG, DAILY
     Route: 064
     Dates: end: 201606

REACTIONS (3)
  - Neonatal respiratory distress syndrome [Recovered/Resolved]
  - Drug withdrawal syndrome neonatal [Recovering/Resolving]
  - Maternal exposure during pregnancy [Recovering/Resolving]

NARRATIVE: CASE EVENT DATE: 20160624
